FAERS Safety Report 9412395 (Version 1)
Quarter: 2013Q3

REPORT INFORMATION
  Report Type: Spontaneous
  Country: US (occurrence: None)
  Receive Date: 20130708
  Receipt Date: 20130708
  Transmission Date: 20140515
  Serious: Yes (Hospitalization, Other)
  Sender: FDA-Public Use
  Company Number: 09-AUR-10288

PATIENT
  Age: 59 Year
  Sex: Female

DRUGS (2)
  1. CIPROFLOXACIN [Suspect]
     Indication: RENAL ABSCESS
     Route: 048
  2. METRONIDAZOLE (METRONIDAZOLE) [Concomitant]

REACTIONS (8)
  - Ballismus [None]
  - Mental status changes [None]
  - Confusional state [None]
  - Irritability [None]
  - Agitation [None]
  - Contusion [None]
  - Injury [None]
  - Disturbance in attention [None]
